FAERS Safety Report 4778648-4 (Version None)
Quarter: 2005Q3

REPORT INFORMATION
  Report Type: 
  Country: None (occurrence: None)
  Receive Date: 20050926
  Receipt Date: 20050831
  Transmission Date: 20060218
  Serious: Yes (Life-Threatening, Hospitalization)
  Sender: FDA-Public Use
  Company Number: 2005JP001705

PATIENT
  Age: 55 Year
  Sex: Female
  Weight: 51.9 kg

DRUGS (9)
  1. CEFAZOLIN [Suspect]
     Indication: INFECTION PROPHYLAXIS
     Dosage: 1G FOUR TIMES PER DAY
     Route: 042
     Dates: start: 20050825, end: 20050825
  2. SEVOFLURANE [Concomitant]
     Route: 065
     Dates: start: 20050825, end: 20050825
  3. VECURONIUM BROMIDE [Concomitant]
     Route: 065
     Dates: start: 20050825, end: 20050825
  4. PROPOFOL [Concomitant]
     Route: 065
     Dates: start: 20050825, end: 20050825
  5. FENTANEST [Concomitant]
     Route: 065
     Dates: start: 20050825, end: 20050825
  6. SOLDEM 3A [Concomitant]
     Route: 065
     Dates: start: 20050825, end: 20050825
  7. SODIUM CHLORIDE [Concomitant]
     Route: 065
     Dates: start: 20050825, end: 20050825
  8. OXYGEN [Concomitant]
     Route: 055
     Dates: start: 20050825, end: 20050825
  9. XYLOCAINE [Concomitant]
     Route: 065
     Dates: start: 20050825, end: 20050825

REACTIONS (7)
  - ANAPHYLACTIC SHOCK [None]
  - ANOREXIA [None]
  - ERYTHEMA [None]
  - HYPOTENSION [None]
  - MALAISE [None]
  - PYREXIA [None]
  - RASH [None]
